FAERS Safety Report 7115122-4 (Version None)
Quarter: 2010Q4

REPORT INFORMATION
  Report Type: 
  Country: None (occurrence: None)
  Receive Date: 20101116
  Receipt Date: 20101116
  Transmission Date: 20110411
  Serious: Yes (Hospitalization)
  Sender: FDA-Public Use
  Company Number: None

PATIENT
  Sex: Female
  Weight: 130.8 kg

DRUGS (7)
  1. TAXOL [Suspect]
     Dosage: 29.4 MG
     Dates: end: 20101021
  2. DEXAMETHASONE [Concomitant]
  3. DIPHENHYDRAMINE [Concomitant]
  4. DOCUSATE SODIUM [Concomitant]
  5. FAMOTIDINE [Concomitant]
  6. MORPHINE SULFATE [Concomitant]
  7. ONDANSETRON [Concomitant]

REACTIONS (3)
  - DYSPNOEA [None]
  - RESPIRATORY ARREST [None]
  - UNRESPONSIVE TO STIMULI [None]
